FAERS Safety Report 10285267 (Version 1)
Quarter: 2014Q3

REPORT INFORMATION
  Report Type: Spontaneous
  Country: AU (occurrence: AU)
  Receive Date: 20140708
  Receipt Date: 20140708
  Transmission Date: 20150326
  Serious: Yes (Life-Threatening, Other)
  Sender: FDA-Public Use
  Company Number: AU-BAXTER-2014BAX037032

PATIENT
  Age: 75 Year
  Sex: Male

DRUGS (2)
  1. OXALIPLATIN. [Suspect]
     Active Substance: OXALIPLATIN
     Indication: PRODUCT USED FOR UNKNOWN INDICATION
     Route: 065
  2. BAXTER 5% GLUCOSE 50G_1000ML INJECTION BP BAG AHB0064 [Suspect]
     Active Substance: DEXTROSE
     Indication: MEDICATION DILUTION
     Route: 065

REACTIONS (5)
  - Diplopia [Recovered/Resolved]
  - Sneezing [Recovered/Resolved]
  - Gait disturbance [Recovered/Resolved]
  - Swollen tongue [Recovered/Resolved]
  - Vision blurred [Recovered/Resolved]
